FAERS Safety Report 10235280 (Version 1)
Quarter: 2014Q2

REPORT INFORMATION
  Report Type: Spontaneous
  Country: US (occurrence: US)
  Receive Date: 20140613
  Receipt Date: 20140613
  Transmission Date: 20141212
  Serious: No
  Sender: FDA-Public Use
  Company Number: US-PFIZER INC-2014159903

PATIENT
  Age: 70 Year
  Sex: Male

DRUGS (4)
  1. NEURONTIN [Suspect]
     Dosage: UNK
  2. DEMEROL [Suspect]
     Dosage: UNK
  3. BENADRYL [Suspect]
     Dosage: UNK
  4. BACTRIM [Suspect]
     Dosage: UNK

REACTIONS (1)
  - Drug hypersensitivity [Unknown]
